FAERS Safety Report 9702321 (Version 1)
Quarter: 2013Q4

REPORT INFORMATION
  Report Type: Spontaneous
  Country: FR (occurrence: FR)
  Receive Date: 20131121
  Receipt Date: 20131121
  Transmission Date: 20140711
  Serious: Yes (Hospitalization)
  Sender: FDA-Public Use
  Company Number: PHHY2013FR132364

PATIENT
  Sex: 0

DRUGS (1)
  1. VANCOMYCIN SANDOZ [Suspect]
     Indication: PROPHYLAXIS
     Route: 042

REACTIONS (1)
  - Toxic skin eruption [Recovered/Resolved]
